FAERS Safety Report 19205578 (Version 1)
Quarter: 2021Q2

REPORT INFORMATION
  Report Type: Spontaneous
  Country: US (occurrence: US)
  Receive Date: 20210503
  Receipt Date: 20210503
  Transmission Date: 20210717
  Serious: No
  Sender: FDA-Public Use
  Company Number: US-FARMAPROD-202103-0478

PATIENT
  Sex: Female
  Weight: 52.66 kg

DRUGS (14)
  1. OXERVATE [Suspect]
     Active Substance: CENEGERMIN-BKBJ
     Indication: HYPOAESTHESIA EYE
  2. MULTIVITAMIN [Concomitant]
     Active Substance: VITAMINS
  3. VALIUM [Concomitant]
     Active Substance: DIAZEPAM
  4. TRAZODONE HYDROCHLORIDE. [Concomitant]
     Active Substance: TRAZODONE HYDROCHLORIDE
  5. VALTREX [Concomitant]
     Active Substance: VALACYCLOVIR HYDROCHLORIDE
  6. VISINE [Concomitant]
     Active Substance: TETRAHYDROZOLINE HYDROCHLORIDE
     Dosage: 1%?0.36%
  7. VITAMIN B12 [Concomitant]
     Active Substance: CYANOCOBALAMIN
     Dosage: 5K?100 MCG
  8. OMEGA 3?6?9 [Concomitant]
     Active Substance: FISH OIL
  9. XANAX XR [Concomitant]
     Active Substance: ALPRAZOLAM
     Dosage: EXTENDED RELEASE TABLET
  10. ARTIFICIAL TEAR [Concomitant]
     Active Substance: LANOLIN\MINERAL OIL\PETROLATUM
  11. VITAMIN D2 [Concomitant]
     Active Substance: ERGOCALCIFEROL
  12. PROLENSA [Concomitant]
     Active Substance: BROMFENAC SODIUM
  13. XIIDRA [Concomitant]
     Active Substance: LIFITEGRAST
     Dosage: DROPERETTE
  14. OXERVATE [Suspect]
     Active Substance: CENEGERMIN-BKBJ
     Indication: NEUROTROPHIC KERATOPATHY
     Route: 047
     Dates: start: 20210211

REACTIONS (1)
  - Product storage error [Unknown]
